FAERS Safety Report 8521867 (Version 3)
Quarter: 2014Q3

REPORT INFORMATION
  Report Type: Spontaneous
  Country: US (occurrence: US)
  Receive Date: 20120419
  Receipt Date: 20140801
  Transmission Date: 20150326
  Serious: Yes (Other)
  Sender: FDA-Public Use
  Company Number: US-ROCHE-784256

PATIENT
  Age: 21 Year
  Sex: Male
  Weight: 85.35 kg

DRUGS (2)
  1. ACCUTANE [Suspect]
     Active Substance: ISOTRETINOIN
     Indication: ACNE
     Route: 065
     Dates: start: 19920706, end: 199403
  2. ACCUTANE [Suspect]
     Active Substance: ISOTRETINOIN
     Route: 065
     Dates: start: 198812, end: 198904

REACTIONS (9)
  - Colitis ulcerative [Unknown]
  - Stress [Unknown]
  - Irritable bowel syndrome [Unknown]
  - Depression [Unknown]
  - Blood triglycerides increased [Unknown]
  - Dry skin [Unknown]
  - Cheilitis [Unknown]
  - Inflammatory bowel disease [Unknown]
  - Osteoarthritis [Unknown]

NARRATIVE: CASE EVENT DATE: 19920814
